FAERS Safety Report 9097975 (Version 3)
Quarter: 2013Q1

REPORT INFORMATION
  Report Type: Spontaneous
  Country: US (occurrence: US)
  Receive Date: 20130212
  Receipt Date: 20130328
  Transmission Date: 20140127
  Serious: Yes (Death)
  Sender: FDA-Public Use
  Company Number: US-PFIZER INC-2013054824

PATIENT
  Age: 60 Year
  Sex: Male

DRUGS (18)
  1. SUTENT [Suspect]
     Indication: MALIGNANT NEOPLASM OF RENAL PELVIS
     Dosage: 50 MG, UNK
     Route: 048
     Dates: start: 20130122
  2. BETACAROTENE [Concomitant]
     Dosage: UNK
  3. ECHINACEA [Concomitant]
     Dosage: UNK
  4. MIRALAX [Concomitant]
     Dosage: UNK
  5. NASONEX [Concomitant]
     Dosage: UNK
  6. OXYCODONE/PARACETAMOL [Concomitant]
     Dosage: UNK
  7. OXYCONTIN [Concomitant]
     Dosage: UNK
  8. PERCOCET [Concomitant]
     Dosage: UNK
  9. PHENERGAN [Concomitant]
     Dosage: UNK
  10. SELENIUM [Concomitant]
     Dosage: UNK
  11. SENNA [Concomitant]
     Dosage: UNK
  12. SOMA [Concomitant]
     Dosage: UNK
  13. TYLENOL [Concomitant]
     Dosage: UNK
  14. VITAMIN B6 [Concomitant]
     Dosage: UNK
  15. VITAMIN C [Concomitant]
     Dosage: UNK
  16. ZANTAC [Concomitant]
     Dosage: UNK
  17. ZINC [Concomitant]
     Dosage: UNK
  18. ZOFRAN [Concomitant]
     Dosage: UNK

REACTIONS (7)
  - Death [Fatal]
  - Fatigue [Unknown]
  - Nausea [Unknown]
  - Vomiting [Unknown]
  - Diarrhoea [Unknown]
  - Oral pain [Unknown]
  - Dehydration [Unknown]
